FAERS Safety Report 6954451-1 (Version None)
Quarter: 2010Q3

REPORT INFORMATION
  Report Type: 
  Country: None (occurrence: None)
  Receive Date: 20100829
  Receipt Date: 20100716
  Transmission Date: 20110219
  Serious: No
  Sender: FDA-Public Use
  Company Number: US-ABBOTT-10P-163-0658528-00

PATIENT
  Weight: 89.892 kg

DRUGS (8)
  1. NIASPAN [Suspect]
     Indication: BLOOD TRIGLYCERIDES INCREASED
     Dates: start: 20100715
  2. ASPIRIN [Concomitant]
     Indication: PRODUCT USED FOR UNKNOWN INDICATION
  3. AMBROTOSE [Concomitant]
     Indication: PRODUCT USED FOR UNKNOWN INDICATION
  4. PLUS [Concomitant]
     Indication: SUPPLEMENTATION THERAPY
  5. ZYRTEC [Concomitant]
     Indication: HYPERSENSITIVITY
  6. CO Q-10 [Concomitant]
     Indication: PRODUCT USED FOR UNKNOWN INDICATION
  7. FISH OIL [Concomitant]
     Indication: SUPPLEMENTATION THERAPY
  8. VITAMIN B COMPLEX CAP [Concomitant]
     Indication: VITAMIN SUPPLEMENTATION

REACTIONS (3)
  - NASAL OEDEMA [None]
  - OEDEMA PERIPHERAL [None]
  - SKIN BURNING SENSATION [None]
